FAERS Safety Report 17330032 (Version 1)
Quarter: 2020Q1

REPORT INFORMATION
  Report Type: Spontaneous
  Country: ES (occurrence: ES)
  Receive Date: 20200128
  Receipt Date: 20200128
  Transmission Date: 20200409
  Serious: Yes (Other)
  Sender: FDA-Public Use
  Company Number: ALC2020ES000566

PATIENT

DRUGS (1)
  1. COLIRCUSI CICLOPLEJICO [Suspect]
     Active Substance: CYCLOPENTOLATE HYDROCHLORIDE
     Indication: OPHTHALMOLOGICAL EXAMINATION
     Dosage: 3 GOTAS CADA 15 MINUTOS TRES VECES, ONCE/SINGLE
     Route: 047
     Dates: start: 20191211, end: 20191211

REACTIONS (6)
  - Photophobia [Unknown]
  - Decreased appetite [Unknown]
  - Headache [Unknown]
  - Mydriasis [Unknown]
  - Pyrexia [Unknown]
  - Vision blurred [Unknown]

NARRATIVE: CASE EVENT DATE: 20191211
